FAERS Safety Report 8620093-5 (Version None)
Quarter: 2012Q3

REPORT INFORMATION
  Report Type: 
  Country: None (occurrence: None)
  Receive Date: 20120824
  Receipt Date: 20120816
  Transmission Date: 20120928
  Serious: Yes (Other)
  Sender: FDA-Public Use
  Company Number: US-JNJFOC-20120808511

PATIENT
  Sex: Male

DRUGS (6)
  1. MYLANTA (ALUMINIUM HYDROXIDE/MAGNESIUM HYDROXIDE) [Concomitant]
  2. XARELTO [Suspect]
     Indication: PRODUCT USED FOR UNKNOWN INDICATION
     Route: 048
  3. TYLENOL [Suspect]
     Indication: PRODUCT USED FOR UNKNOWN INDICATION
  4. ASPIRIN [Concomitant]
  5. TYLENOL [Suspect]
  6. MULTIPLE MEDICATIONS [Concomitant]
     Dosage: 19 TOTAL

REACTIONS (1)
  - TRANSIENT ISCHAEMIC ATTACK [None]
